FAERS Safety Report 8819284 (Version 4)
Quarter: 2014Q3

REPORT INFORMATION
  Report Type: Spontaneous
  Country: GB (occurrence: None)
  Receive Date: 20121003
  Receipt Date: 20140716
  Transmission Date: 20150326
  Serious: Yes (Hospitalization)
  Sender: FDA-Public Use
  Company Number: VAL_00877_2012

PATIENT
  Age: 88 Year
  Sex: Male

DRUGS (8)
  1. METOPROLOL [Suspect]
     Active Substance: METOPROLOL
     Indication: PRODUCT USED FOR UNKNOWN INDICATION
     Dosage: (25 MG BID, DF)
     Dates: start: 20110510
  2. CINNARIZINE [Concomitant]
     Active Substance: CINNARIZINE
  3. SIMVASTATIN. [Concomitant]
     Active Substance: SIMVASTATIN
  4. WARFARIN [Concomitant]
     Active Substance: WARFARIN
  5. GTN [Concomitant]
     Active Substance: NITROGLYCERIN
  6. ENALAPRIL [Suspect]
     Active Substance: ENALAPRIL
     Indication: CARDIAC FAILURE CHRONIC
     Dosage: (CODE NOT   BROKEN (REGIMEN #1) ORAL)
     Route: 048
     Dates: start: 20101206
  7. FLUOXETINE [Concomitant]
     Active Substance: FLUOXETINE\FLUOXETINE HYDROCHLORIDE
  8. FUROSEMIDE. [Concomitant]
     Active Substance: FUROSEMIDE

REACTIONS (8)
  - Heart rate decreased [None]
  - Cardiac failure [None]
  - Hypotension [None]
  - Disease progression [None]
  - Dyspnoea [None]
  - Dizziness [None]
  - Angina pectoris [None]
  - Rales [None]

NARRATIVE: CASE EVENT DATE: 20120829
